FAERS Safety Report 5923309-9 (Version None)
Quarter: 2008Q4

REPORT INFORMATION
  Report Type: 
  Country: None (occurrence: None)
  Receive Date: 20081020
  Receipt Date: 20081013
  Transmission Date: 20090506
  Serious: Yes (Hospitalization, Other)
  Sender: FDA-Public Use
  Company Number: US-BAYER-200827366NA

PATIENT
  Age: 48 Year
  Sex: Female
  Weight: 76 kg

DRUGS (4)
  1. CLIMARA [Suspect]
     Indication: DRUG USE FOR UNKNOWN INDICATION
     Route: 062
     Dates: start: 19900101, end: 19980701
  2. PREMARIN [Suspect]
     Dates: start: 19900101, end: 19980701
  3. PROVERA [Suspect]
     Dates: start: 19900101, end: 19980701
  4. PREMPRO [Suspect]
     Dates: start: 19900101, end: 19980701

REACTIONS (8)
  - ABDOMINAL PAIN UPPER [None]
  - BREAST CANCER IN SITU [None]
  - CERVICAL DYSPLASIA [None]
  - CERVIX CARCINOMA [None]
  - DEPRESSION [None]
  - DERMAL CYST [None]
  - IMPAIRED WORK ABILITY [None]
  - MORTON'S NEUROMA [None]
